FAERS Safety Report 18769981 (Version 1)
Quarter: 2021Q1

REPORT INFORMATION
  Report Type: Spontaneous
  Country: US (occurrence: US)
  Receive Date: 20210122
  Receipt Date: 20210122
  Transmission Date: 20210419
  Serious: Yes (Death, Hospitalization)
  Sender: FDA-Public Use
  Company Number: US-CELLTRION INC.-2021US000630

PATIENT

DRUGS (16)
  1. ROMIPLOSTIM [Suspect]
     Active Substance: ROMIPLOSTIM
     Dosage: 4 UG/KG
  2. ROMIPLOSTIM [Suspect]
     Active Substance: ROMIPLOSTIM
     Dosage: 2 UG/KG WEEKLY
  3. ENOXAPARIN [Suspect]
     Active Substance: ENOXAPARIN
     Dosage: INCREASED TO 60 MG TWICE DAILY
  4. RITUXIMAB (UNKNOWN) [Suspect]
     Active Substance: RITUXIMAB
     Indication: RENAL CELL CARCINOMA
     Dosage: 375 MG/M2 WEEKLY
  5. DEXAMETHASONE. [Suspect]
     Active Substance: DEXAMETHASONE
     Indication: RENAL CELL CARCINOMA
     Dosage: 40 MG DAILY WAS RESUMED
  6. ROMIPLOSTIM [Suspect]
     Active Substance: ROMIPLOSTIM
     Indication: IMMUNE THROMBOCYTOPENIA
     Dosage: 1 UG PER KG WEEKLY
     Route: 058
  7. ROMIPLOSTIM [Suspect]
     Active Substance: ROMIPLOSTIM
     Indication: RENAL CELL CARCINOMA
     Dosage: 3 UG/KG FOR THE NEXT DOSE (WEEK 2 OF TREATMENT)
  8. DEXAMETHASONE. [Suspect]
     Active Substance: DEXAMETHASONE
     Indication: IMMUNE THROMBOCYTOPENIA
     Dosage: 40 MG DAILY WAS STARTED FOR 4 DAYS
  9. ROMIPLOSTIM [Suspect]
     Active Substance: ROMIPLOSTIM
     Dosage: INCREASED TO 4 UG/KG WEEKLY
  10. ENOXAPARIN [Suspect]
     Active Substance: ENOXAPARIN
     Dosage: 40 MG TWICE DAILY
  11. DEXAMETHASONE. [Suspect]
     Active Substance: DEXAMETHASONE
     Dosage: 4 MG TWICE DAILY WITH A TAPER PLAN
  12. ENOXAPARIN [Suspect]
     Active Substance: ENOXAPARIN
     Indication: DEEP VEIN THROMBOSIS
     Dosage: 30 MG TWICE DAILY
  13. ENOXAPARIN [Suspect]
     Active Substance: ENOXAPARIN
     Dosage: RESUMED AT 40 MG TWICE DAILY
  14. ELTROMBOPAG [Suspect]
     Active Substance: ELTROMBOPAG
     Indication: IMMUNE THROMBOCYTOPENIA
     Dosage: 75 MG, DAILY
  15. RITUXIMAB (UNKNOWN) [Suspect]
     Active Substance: RITUXIMAB
     Indication: IMMUNE THROMBOCYTOPENIA
     Dosage: 375 MG/M2 WEEKLY
  16. ROMIPLOSTIM [Suspect]
     Active Substance: ROMIPLOSTIM
     Dosage: 6 UG/KG WEEKLY

REACTIONS (8)
  - Off label use [Unknown]
  - Disease progression [Fatal]
  - Hyperbilirubinaemia [Unknown]
  - Hepatic enzyme increased [Unknown]
  - Condition aggravated [Fatal]
  - Abdominal pain [Unknown]
  - Thrombocytopenia [Fatal]
  - Metastasis [Fatal]
